FAERS Safety Report 7635012-8 (Version None)
Quarter: 2011Q3

REPORT INFORMATION
  Report Type: 
  Country: None (occurrence: None)
  Receive Date: 20110718
  Receipt Date: 20110706
  Transmission Date: 20111222
  Serious: Yes (Hospitalization)
  Sender: FDA-Public Use
  Company Number: DSA_46992_2011

PATIENT
  Age: 92 Year
  Sex: Female

DRUGS (9)
  1. MORPHINE SULFATE [Suspect]
     Indication: SPINAL COMPRESSION FRACTURE
     Dosage: 5 MG, FREQUENCY UNKNOWN ORAL
     Route: 048
     Dates: start: 20110513
  2. ACETAMINOPHEN [Suspect]
     Indication: SPINAL COMPRESSION FRACTURE
     Dosage: DF ORAL
     Route: 048
     Dates: start: 20110513
  3. LOVENOX [Suspect]
     Indication: THROMBOSIS PROPHYLAXIS
     Dosage: 0.4 ML QD SUBCUTANEOUS
     Route: 058
     Dates: start: 20110513
  4. ESOMEPRAZOLE MAGNESIUM [Suspect]
     Indication: GASTRITIS
     Dosage: 40 MG QD ORAL
     Route: 048
     Dates: start: 20110531
  5. DILTIAZEM HYDROCHLORIDE [Suspect]
     Indication: ARRHYTHMIA
     Dosage: 60 MG QD ORAL
     Route: 048
     Dates: start: 20110521
  6. KARDEGIC (KARDEGIC - ACETYLSALICYLATELYSINE) 75 MG (NOT SPECIFIED) [Suspect]
     Indication: PRODUCT USED FOR UNKNOWN INDICATION
     Dosage: 75 MG QD ORAL
     Route: 048
  7. VITAMIN D [Suspect]
     Indication: PRODUCT USED FOR UNKNOWN INDICATION
     Dosage: 2 DF 1X/MONTH ORAL
     Route: 048
     Dates: start: 20110603
  8. PLAVIX [Suspect]
     Indication: PRODUCT USED FOR UNKNOWN INDICATION
     Dosage: 75 MG QD ORAL
     Route: 048
     Dates: start: 20110519, end: 20110606
  9. CALCIUM CARBONATE [Suspect]
     Indication: OSTEOPOROSIS
     Dosage: 1 DF QD ORAL
     Route: 048
     Dates: start: 20110520

REACTIONS (3)
  - FALL [None]
  - BACK PAIN [None]
  - HENOCH-SCHONLEIN PURPURA [None]
